FAERS Safety Report 20545615 (Version 1)
Quarter: 2022Q1

REPORT INFORMATION
  Report Type: Spontaneous
  Country: NO (occurrence: NO)
  Receive Date: 20220303
  Receipt Date: 20220303
  Transmission Date: 20220423
  Serious: Yes (Other)
  Sender: FDA-Public Use
  Company Number: None

PATIENT
  Age: 48 Year
  Sex: Female

DRUGS (4)
  1. SINGULAIR [Suspect]
     Active Substance: MONTELUKAST SODIUM
     Indication: Asthma
     Dosage: 1 DOSAGE FORM, QD
     Route: 048
     Dates: start: 202110, end: 202111
  2. VITAMIN D3 [Concomitant]
     Active Substance: CHOLECALCIFEROL
     Dosage: UNK
  3. VITAMIN C [Concomitant]
     Active Substance: ASCORBIC ACID
     Dosage: UNK
  4. INUXAIR [Concomitant]
     Indication: Asthma
     Dosage: MORNING AND EVENING.
     Dates: start: 202110, end: 202111

REACTIONS (2)
  - Drug ineffective [Unknown]
  - Upper respiratory fungal infection [Recovered/Resolved]

NARRATIVE: CASE EVENT DATE: 20211101
